FAERS Safety Report 8203681-X (Version None)
Quarter: 2012Q1

REPORT INFORMATION
  Report Type: 
  Country: None (occurrence: None)
  Receive Date: 20120308
  Receipt Date: 20120223
  Transmission Date: 20120608
  Serious: Yes (Life-Threatening, Hospitalization)
  Sender: FDA-Public Use
  Company Number: 2012000033

PATIENT
  Age: 73 Year
  Sex: Female

DRUGS (3)
  1. ALTEPLASE (ALTEPLASE) [Suspect]
     Indication: ISCHAEMIC STROKE
     Dosage: 2 INFUSIONS OF 58 MG, INTRAVENOUS
     Route: 042
  2. ASPIRIN [Concomitant]
  3. ACEON [Suspect]
     Indication: HYPERTENSION
     Dosage: ORAL
     Route: 048

REACTIONS (10)
  - RESPIRATORY DISTRESS [None]
  - ANGIOEDEMA [None]
  - CEREBRAL ARTERY OCCLUSION [None]
  - CEREBRAL INFARCTION [None]
  - CEREBRAL ARTERY THROMBOSIS [None]
  - DRUG INTERACTION [None]
  - HEMIPARESIS [None]
  - SENSORY LOSS [None]
  - ANAPHYLACTIC REACTION [None]
  - INFUSION RELATED REACTION [None]
